FAERS Safety Report 6820000-1 (Version None)
Quarter: 2010Q3

REPORT INFORMATION
  Report Type: 
  Country: None (occurrence: None)
  Receive Date: 20100707
  Receipt Date: 20100628
  Transmission Date: 20110219
  Serious: Yes (Hospitalization)
  Sender: FDA-Public Use
  Company Number: US-ASTRAZENECA-2010SE23190

PATIENT
  Age: 74 Year
  Sex: Female
  Weight: 74.8 kg

DRUGS (7)
  1. NEXIUM [Suspect]
     Route: 048
     Dates: start: 20091001
  2. NEXIUM [Suspect]
     Route: 048
     Dates: start: 20100504, end: 20100518
  3. DIGOXIN [Concomitant]
  4. COUMADIN [Concomitant]
  5. SERTRALINE [Concomitant]
     Indication: DEPRESSION
  6. PRAVASTATIN [Concomitant]
     Indication: BLOOD CHOLESTEROL
  7. AMLODIPINE [Concomitant]
     Indication: HYPERTENSION

REACTIONS (5)
  - ABDOMINAL DISCOMFORT [None]
  - ATRIAL FIBRILLATION [None]
  - CHROMATURIA [None]
  - HAEMATURIA [None]
  - PALPITATIONS [None]
